FAERS Safety Report 11362299 (Version 1)
Quarter: 2015Q3

REPORT INFORMATION
  Report Type: Spontaneous
  Country: US (occurrence: US)
  Receive Date: 20150810
  Receipt Date: 20150810
  Transmission Date: 20151125
  Serious: No
  Sender: FDA-Public Use
  Company Number: US-MIKART, INC.-1041000

PATIENT
  Age: 63 Year
  Sex: Female
  Weight: 55.91 kg

DRUGS (1)
  1. BUTALBITAL AND ACETAMINOPHEN [Suspect]
     Active Substance: ACETAMINOPHEN\BUTALBITAL
     Route: 048

REACTIONS (1)
  - Coeliac disease [Not Recovered/Not Resolved]
